FAERS Safety Report 4821732-7 (Version None)
Quarter: 2005Q4

REPORT INFORMATION
  Report Type: 
  Country: None (occurrence: None)
  Receive Date: 20051103
  Receipt Date: 20051018
  Transmission Date: 20060501
  Serious: Yes (Hospitalization)
  Sender: FDA-Public Use
  Company Number: USA0507101867

PATIENT
  Age: 79 Year
  Sex: Female

DRUGS (14)
  1. CYMBALTA [Suspect]
     Indication: NEUROPATHY
     Dosage: 60 MG
  2. GLUCOVANCE [Concomitant]
  3. COZAAR [Concomitant]
  4. ALPRAZOLAM [Concomitant]
  5. ALLEGRA [Concomitant]
  6. ATENOLOL [Concomitant]
  7. LEVOXYL [Concomitant]
  8. ACETAMINOPHEN W/ PROPOXYPHENE HCL [Concomitant]
  9. ADVICOR [Concomitant]
  10. ASPIRIN [Concomitant]
  11. NEURONTIN [Concomitant]
  12. SALSALATE [Concomitant]
  13. NITROSTAT [Concomitant]
  14. FUROSEMIDE (FUROSEMIDE /00032601/) [Concomitant]

REACTIONS (2)
  - ABDOMINAL PAIN [None]
  - BLOOD PRESSURE INCREASED [None]
